FAERS Safety Report 8047394-6 (Version None)
Quarter: 2012Q1

REPORT INFORMATION
  Report Type: 
  Country: None (occurrence: None)
  Receive Date: 20120116
  Receipt Date: 20120109
  Transmission Date: 20120608
  Serious: Yes (Hospitalization, Other)
  Sender: FDA-Public Use
  Company Number: US-ABBOTT-12P-163-0891258-00

PATIENT
  Sex: Female
  Weight: 74.456 kg

DRUGS (6)
  1. HUMIRA [Suspect]
     Indication: PSORIASIS
     Dates: start: 20070101, end: 20110101
  2. CARDIZEM [Concomitant]
     Indication: ANGINA PECTORIS
  3. MULTI-VITAMIN [Concomitant]
     Indication: VITAMIN SUPPLEMENTATION
  4. LIPITOR [Concomitant]
     Indication: BLOOD CHOLESTEROL INCREASED
  5. ASPIRIN [Concomitant]
     Indication: CARDIAC DISORDER
  6. HUMIRA [Suspect]
     Indication: PSORIATIC ARTHROPATHY

REACTIONS (11)
  - PNEUMONIA [None]
  - GAIT DISTURBANCE [None]
  - HERPES ZOSTER [None]
  - PSORIASIS [None]
  - CEREBROVASCULAR ACCIDENT [None]
  - PAIN [None]
  - CSF PROTEIN INCREASED [None]
  - MOVEMENT DISORDER [None]
  - APHASIA [None]
  - PARALYSIS [None]
  - INFLUENZA [None]
